FAERS Safety Report 8180228-8 (Version None)
Quarter: 2012Q1

REPORT INFORMATION
  Report Type: 
  Country: None (occurrence: None)
  Receive Date: 20120302
  Receipt Date: 20120224
  Transmission Date: 20120608
  Serious: Yes (Hospitalization)
  Sender: FDA-Public Use
  Company Number: US-SANOFI-AVENTIS-2012SA012450

PATIENT
  Age: 73 Year
  Sex: Female

DRUGS (2)
  1. ASPIRIN [Concomitant]
  2. LOVENOX [Suspect]
     Indication: ANTIPLATELET THERAPY
     Route: 042
     Dates: start: 20110731

REACTIONS (7)
  - IMPAIRED SELF-CARE [None]
  - GASTROSTOMY TUBE INSERTION [None]
  - CEREBROVASCULAR ACCIDENT [None]
  - MEMORY IMPAIRMENT [None]
  - PARALYSIS [None]
  - SKULL X-RAY ABNORMAL [None]
  - APHAGIA [None]
